FAERS Safety Report 16723305 (Version 1)
Quarter: 2019Q3

REPORT INFORMATION
  Report Type: Spontaneous
  Country: BR (occurrence: BR)
  Receive Date: 20190821
  Receipt Date: 20190821
  Transmission Date: 20191005
  Serious: Yes (Other)
  Sender: FDA-Public Use
  Company Number: BR-LUPIN PHARMACEUTICALS INC.-2019-05193

PATIENT
  Age: 30 Year
  Sex: Female

DRUGS (2)
  1. MICACIN [Suspect]
     Active Substance: MICRONOMICIN SULFATE
     Indication: INFECTION
     Dosage: UNK
     Route: 065
  2. VANCOMYCIN [Suspect]
     Active Substance: VANCOMYCIN
     Indication: INFECTION
     Dosage: UNK
     Route: 065

REACTIONS (1)
  - Deafness [Unknown]
